FAERS Safety Report 15488273 (Version 1)
Quarter: 2018Q4

REPORT INFORMATION
  Report Type: Spontaneous
  Country: US (occurrence: US)
  Receive Date: 20181011
  Receipt Date: 20181011
  Transmission Date: 20190205
  Serious: No
  Sender: FDA-Public Use
  Company Number: US-PFIZER INC-2017542027

PATIENT
  Age: 11 Year
  Sex: Male
  Weight: 31.75 kg

DRUGS (3)
  1. GENOTROPIN [Suspect]
     Active Substance: SOMATROPIN
     Indication: GROWTH HORMONE DEFICIENCY
     Dosage: UNK, DAILY (INTRAMUSCULAR INJECTION, ONCE A DAY)
     Route: 030
  2. GENOTROPIN [Suspect]
     Active Substance: SOMATROPIN
     Dosage: 1.4 MG, DAILY
     Dates: start: 20170522
  3. GENOTROPIN [Suspect]
     Active Substance: SOMATROPIN
     Dosage: 1.2 MG, DAILY
     Dates: start: 2017

REACTIONS (4)
  - Product administration error [Unknown]
  - Incorrect route of product administration [Unknown]
  - Product storage error [Unknown]
  - Insulin-like growth factor increased [Unknown]
